FAERS Safety Report 7386056-5 (Version None)
Quarter: 2011Q1

REPORT INFORMATION
  Report Type: 
  Country: None (occurrence: None)
  Receive Date: 20110331
  Receipt Date: 20110322
  Transmission Date: 20110831
  Serious: Yes (Hospitalization)
  Sender: FDA-Public Use
  Company Number: DE-ASTRAZENECA-2011SE16097

PATIENT
  Age: 54 Year
  Sex: Female

DRUGS (2)
  1. NEXIUM [Suspect]
     Route: 048
     Dates: start: 20040101, end: 20110321
  2. METFORMIN HCL [Concomitant]

REACTIONS (5)
  - PNEUMONIA [None]
  - ORAL CANDIDIASIS [None]
  - SKIN EXFOLIATION [None]
  - DYSPNOEA [None]
  - OESOPHAGEAL CANDIDIASIS [None]
